FAERS Safety Report 16327211 (Version 1)
Quarter: 2019Q2

REPORT INFORMATION
  Report Type: Spontaneous
  Country: US (occurrence: US)
  Receive Date: 20190517
  Receipt Date: 20190517
  Transmission Date: 20190711
  Serious: No
  Sender: FDA-Public Use
  Company Number: US-SA-2019SA135499

PATIENT
  Sex: Male

DRUGS (1)
  1. DUPIXENT [Suspect]
     Active Substance: DUPILUMAB
     Indication: ECZEMA
     Dosage: 300 MG, QOW
     Route: 058
     Dates: start: 20180830

REACTIONS (4)
  - Muscle spasms [Not Recovered/Not Resolved]
  - Tendon injury [Not Recovered/Not Resolved]
  - Tendonitis [Not Recovered/Not Resolved]
  - Streptococcal infection [Not Recovered/Not Resolved]

NARRATIVE: CASE EVENT DATE: 2019
